FAERS Safety Report 13418092 (Version 1)
Quarter: 2017Q2

REPORT INFORMATION
  Report Type: Report from Study
  Country: US (occurrence: BR)
  Receive Date: 20170407
  Receipt Date: 20170407
  Transmission Date: 20170830
  Serious: Yes (Hospitalization)
  Sender: FDA-Public Use
  Company Number: US-SUNOVION-2017SUN001427

PATIENT
  Sex: Female
  Weight: 84 kg

DRUGS (2)
  1. INDACATEROL [Suspect]
     Active Substance: INDACATEROL
     Indication: PRODUCT USED FOR UNKNOWN INDICATION
     Dosage: UNK, QD
     Route: 065
     Dates: end: 20170314
  2. INDACATEROL AND GLYCOPYRROLATE [Suspect]
     Active Substance: GLYCOPYRROLATE\INDACATEROL MALEATE
     Indication: CHRONIC OBSTRUCTIVE PULMONARY DISEASE
     Dosage: UNK, QD
     Route: 055
     Dates: start: 20170314

REACTIONS (10)
  - Blood pressure increased [Unknown]
  - Dyspnoea [Unknown]
  - Rhinitis allergic [Unknown]
  - Lung disorder [Unknown]
  - Influenza [Unknown]
  - Drug ineffective [Unknown]
  - Fatigue [Unknown]
  - Malaise [Unknown]
  - Sneezing [Unknown]
  - Cough [Unknown]
